FAERS Safety Report 9096340 (Version 1)
Quarter: 2013Q1

REPORT INFORMATION
  Report Type: Spontaneous
  Country: IN (occurrence: IN)
  Receive Date: 20130207
  Receipt Date: 20130207
  Transmission Date: 20140127
  Serious: Yes (Other)
  Sender: FDA-Public Use
  Company Number: IN-AMGEN-INDSP2013008620

PATIENT
  Age: 56 Year
  Sex: Female

DRUGS (4)
  1. PEGFILGRASTIM [Suspect]
     Indication: PROPHYLAXIS
     Dosage: 6 MUG, UNK
     Route: 058
  2. FLUOROURACIL [Concomitant]
     Indication: BREAST CANCER
     Dosage: UNK
     Route: 065
  3. EPIRUBICIN [Concomitant]
     Indication: BREAST CANCER
     Dosage: UNK
     Route: 065
  4. CYCLOPHOSPHAMIDE [Concomitant]
     Indication: BREAST CANCER
     Dosage: UNK
     Route: 065

REACTIONS (1)
  - Febrile neutropenia [Recovered/Resolved]
